FAERS Safety Report 19932698 (Version 1)
Quarter: 2021Q4

REPORT INFORMATION
  Report Type: Spontaneous
  Country: US (occurrence: US)
  Receive Date: 20211007
  Receipt Date: 20211007
  Transmission Date: 20220303
  Serious: Yes (Other)
  Sender: FDA-Public Use
  Company Number: None

PATIENT
  Age: 91 Year
  Sex: Female
  Weight: 60.75 kg

DRUGS (11)
  1. TRAMADOL [Suspect]
     Active Substance: TRAMADOL
     Indication: Gallbladder cancer
     Dosage: ?          QUANTITY:1 TABLET(S);
     Route: 048
     Dates: start: 20210924, end: 20211002
  2. TRAMADOL [Suspect]
     Active Substance: TRAMADOL
     Indication: Pain
  3. NORVASC [Concomitant]
     Active Substance: AMLODIPINE BESYLATE
  4. PROTONIX [Concomitant]
     Active Substance: PANTOPRAZOLE SODIUM
  5. ATIVAN [Concomitant]
     Active Substance: LORAZEPAM
  6. HYOSYCOMINE [Concomitant]
  7. ACETAMINOPHEN\CODEINE PHOSPHATE [Concomitant]
     Active Substance: ACETAMINOPHEN\CODEINE PHOSPHATE
  8. MINERALS\VITAMINS [Concomitant]
     Active Substance: MINERALS\VITAMINS
  9. TUMS [Concomitant]
     Active Substance: CALCIUM CARBONATE
  10. TAGAMET [Concomitant]
     Active Substance: CIMETIDINE
  11. GAS-X [Concomitant]
     Active Substance: DIMETHICONE

REACTIONS (8)
  - Somnolence [None]
  - Tremor [None]
  - Dyskinesia [None]
  - Fear [None]
  - Agitation [None]
  - Restlessness [None]
  - Sedation [None]
  - Somnolence [None]

NARRATIVE: CASE EVENT DATE: 20211002
